FAERS Safety Report 4602816-5 (Version None)
Quarter: 2005Q1

REPORT INFORMATION
  Report Type: 
  Country: None (occurrence: None)
  Receive Date: 20050307
  Receipt Date: 20050221
  Transmission Date: 20050727
  Serious: Yes (Other)
  Sender: FDA-Public Use
  Company Number: 2005034219

PATIENT
  Age: 40 Year
  Sex: Male

DRUGS (2)
  1. CAMPTOSAR [Suspect]
     Indication: ILL-DEFINED DISORDER
     Dosage: 80 MG, INTRAVENOUS
     Route: 042
     Dates: start: 20041201, end: 20050201
  2. TEGAFUR (TEGAFUR) [Concomitant]

REACTIONS (1)
  - INTERSTITIAL LUNG DISEASE [None]
